FAERS Safety Report 18754303 (Version 1)
Quarter: 2021Q1

REPORT INFORMATION
  Report Type: Spontaneous
  Country: CH (occurrence: CH)
  Receive Date: 20210119
  Receipt Date: 20210119
  Transmission Date: 20210419
  Serious: Yes (Death, Other)
  Sender: FDA-Public Use
  Company Number: CH-TAKEDA-2020TUS060954

PATIENT
  Age: 8 Decade

DRUGS (1)
  1. VELCADE [Suspect]
     Active Substance: BORTEZOMIB
     Indication: PLASMA CELL MYELOMA
     Dosage: 1.3 MILLIGRAM/SQ. METER
     Route: 065
     Dates: start: 20201215, end: 20201218

REACTIONS (2)
  - Pneumonia [Unknown]
  - Escherichia sepsis [Fatal]

NARRATIVE: CASE EVENT DATE: 20201219
